FAERS Safety Report 12390954 (Version 1)
Quarter: 2016Q2

REPORT INFORMATION
  Report Type: Spontaneous
  Country: DE (occurrence: DE)
  Receive Date: 20160520
  Receipt Date: 20160520
  Transmission Date: 20160815
  Serious: Yes (Hospitalization, Other)
  Sender: FDA-Public Use
  Company Number: DE-MYLANLABS-2015M1022255

PATIENT

DRUGS (2)
  1. VENLAFAXIN DURA RETARD 150 MG HARTKAPSELN, RETARDIERT [Suspect]
     Active Substance: VENLAFAXINE HYDROCHLORIDE
     Indication: PRODUCT USED FOR UNKNOWN INDICATION
     Dosage: 150 MG, (ONCE 50 CAPSULES=7500 MG)
  2. RISPERIDON 1A PHARMA [Suspect]
     Active Substance: RISPERIDONE
     Indication: PRODUCT USED FOR UNKNOWN INDICATION
     Dosage: 3 MG (ONCE 60 TABLETS=(=180MG)
     Route: 048

REACTIONS (8)
  - Suicide attempt [Recovered/Resolved]
  - Sopor [Recovered/Resolved]
  - Vaginal haemorrhage [Recovered/Resolved]
  - Overdose [Unknown]
  - Tachycardia [Recovered/Resolved]
  - Apnoea [Recovered/Resolved]
  - Exposure during pregnancy [Unknown]
  - Acidosis [Recovered/Resolved]

NARRATIVE: CASE EVENT DATE: 20150627
